FAERS Safety Report 7344748-8 (Version None)
Quarter: 2011Q1

REPORT INFORMATION
  Report Type: 
  Country: None (occurrence: None)
  Receive Date: 20110310
  Receipt Date: 20110301
  Transmission Date: 20110831
  Serious: Yes (Hospitalization, Other)
  Sender: FDA-Public Use
  Company Number: BR-MEDIMMUNE-MEDI-0012170

PATIENT
  Sex: Male
  Weight: 12.4 kg

DRUGS (3)
  1. DOMPERIDONE [Concomitant]
  2. UNKNOWN INHALER [Concomitant]
     Indication: BRONCHITIS
  3. SYNAGIS [Suspect]
     Route: 030
     Dates: start: 20100201

REACTIONS (7)
  - DYSPNOEA [None]
  - COUGH [None]
  - VOMITING [None]
  - PHARYNGITIS [None]
  - GASTROOESOPHAGEAL REFLUX DISEASE [None]
  - CARDIOMEGALY [None]
  - FATIGUE [None]
